FAERS Safety Report 5750663-3 (Version None)
Quarter: 2008Q2

REPORT INFORMATION
  Report Type: 
  Country: None (occurrence: None)
  Receive Date: 20080528
  Receipt Date: 20080522
  Transmission Date: 20081010
  Serious: Yes (Hospitalization, Other)
  Sender: FDA-Public Use
  Company Number: US-AVENTIS-200813187US

PATIENT
  Age: 78 Year
  Sex: Male

DRUGS (1)
  1. LANTUS [Suspect]
     Dosage: DOSE: UNK
     Route: 058

REACTIONS (3)
  - CARDIAC PACEMAKER INSERTION [None]
  - DIABETES MELLITUS INADEQUATE CONTROL [None]
  - HOSPITALISATION [None]
